FAERS Safety Report 4504720-X (Version None)
Quarter: 2004Q4

REPORT INFORMATION
  Report Type: 
  Country: None (occurrence: None)
  Receive Date: 20041118
  Receipt Date: 20041108
  Transmission Date: 20050328
  Serious: Yes (Disabling)
  Sender: FDA-Public Use
  Company Number: US-MERCK-0411USA01456

PATIENT
  Age: 51 Year
  Sex: Male

DRUGS (3)
  1. ZOCOR [Suspect]
     Indication: BLOOD CHOLESTEROL INCREASED
     Route: 048
     Dates: start: 20040201, end: 20041001
  2. ZOCOR [Suspect]
     Route: 048
     Dates: start: 20041021
  3. COUMADIN [Concomitant]
     Route: 065

REACTIONS (3)
  - MUSCLE CRAMP [None]
  - MUSCLE SPASMS [None]
  - MYALGIA [None]
